FAERS Safety Report 9466588 (Version 1)
Quarter: 2013Q3

REPORT INFORMATION
  Report Type: Spontaneous
  Country: CN (occurrence: CN)
  Receive Date: 20130820
  Receipt Date: 20130820
  Transmission Date: 20140515
  Serious: Yes (Other)
  Sender: FDA-Public Use
  Company Number: CN-PFIZER INC-2013238430

PATIENT
  Age: 68 Year
  Sex: Female

DRUGS (7)
  1. EPIRUBICIN HCL [Suspect]
     Indication: BREAST CANCER METASTATIC
     Dosage: 100 MG, IN 500 ML NORMAL SALINE
     Route: 041
  2. DIPHENHYDRAMINE [Concomitant]
     Indication: BREAST CANCER METASTATIC
     Dosage: 20 MG, UNK
     Route: 030
  3. VITAMIN B6 [Concomitant]
     Indication: BREAST CANCER METASTATIC
     Dosage: 200 MG IN 250 ML NORMAL SALINE
     Route: 041
  4. DEXAMETHASONE [Concomitant]
     Indication: BREAST CANCER METASTATIC
     Dosage: 10 MG, INJECTION
  5. FAMOTIDINE [Concomitant]
     Indication: BREAST CANCER METASTATIC
     Dosage: 20 MG, INJECTION
  6. GRANISETRON [Concomitant]
     Indication: BREAST CANCER METASTATIC
     Dosage: 100 ML, UNK
     Route: 041
  7. CYCLOPHOSPHAMIDE [Concomitant]
     Indication: BREAST CANCER METASTATIC
     Dosage: 1000 ML, IN 500 ML NORMAL SALINE
     Route: 041

REACTIONS (1)
  - Anaphylactic shock [Recovered/Resolved]
